FAERS Safety Report 8886993 (Version 3)
Quarter: 2012Q4

REPORT INFORMATION
  Report Type: 
  Country: US (occurrence: US)
  Receive Date: 20121105
  Receipt Date: 20121211
  Transmission Date: 20130627
  Serious: Yes (Other)
  Sender: FDA-Public Use
  Company Number: US-PFIZER INC-2012268149

PATIENT
  Age: 79 Year
  Sex: Female
  Weight: 78.91 kg

DRUGS (5)
  1. PREMARIN [Suspect]
     Indication: VAGINAL DRYNESS
     Dosage: Unknown dose (10 units on applicator), 2x/week
     Route: 067
  2. PREMARIN [Suspect]
     Indication: YEAST INFECTION
     Dosage: UNK
  3. TENORMIN [Concomitant]
     Dosage: 15 mg (1 tablet of 10 mg in the morning and half tablet of 10 mg at night), daily
  4. HYDROCHLOROTHIAZIDE/TRIAMTERENE [Concomitant]
     Indication: BLOOD PRESSURE INCREASED
     Dosage: 5/25 mg, daily
  5. OMEPRAZOLE [Concomitant]
     Indication: GASTROESOPHAGEAL REFLUX
     Dosage: 40 mg, daily

REACTIONS (1)
  - Sinusitis [Recovered/Resolved]
